APPROVED DRUG PRODUCT: JANUVIA
Active Ingredient: SITAGLIPTIN PHOSPHATE
Strength: EQ 50MG BASE
Dosage Form/Route: TABLET;ORAL
Application: N021995 | Product #002 | TE Code: AB
Applicant: MERCK SHARP AND DOHME CORP
Approved: Oct 16, 2006 | RLD: Yes | RS: No | Type: RX

PATENTS:
Patent 7326708 | Expires: Nov 24, 2026
Patent 7326708*PED | Expires: May 24, 2027